FAERS Safety Report 18137486 (Version 2)
Quarter: 2020Q4

REPORT INFORMATION
  Report Type: Spontaneous
  Country: DE (occurrence: DE)
  Receive Date: 20200812
  Receipt Date: 20201007
  Transmission Date: 20210113
  Serious: Yes (Hospitalization)
  Sender: FDA-Public Use
  Company Number: DE-ROCHE-2655224

PATIENT
  Age: 70 Year
  Sex: Male

DRUGS (6)
  1. FAMPYRA [Concomitant]
     Active Substance: DALFAMPRIDINE
  2. GABAPENTIN. [Concomitant]
     Active Substance: GABAPENTIN
  3. BACLOFEN. [Concomitant]
     Active Substance: BACLOFEN
  4. OCREVUS [Suspect]
     Active Substance: OCRELIZUMAB
     Indication: MULTIPLE SCLEROSIS
     Dosage: SIX-MONTHLY
     Route: 042
     Dates: start: 20180806, end: 20200203
  5. METYPRED [Concomitant]
     Active Substance: METHYLPREDNISOLONE
  6. FENISTIL [Concomitant]
     Active Substance: DIMETHINDENE

REACTIONS (1)
  - Prostate cancer [Recovering/Resolving]

NARRATIVE: CASE EVENT DATE: 20200526
